FAERS Safety Report 19375392 (Version 1)
Quarter: 2021Q2

REPORT INFORMATION
  Report Type: Spontaneous
  Country: CN (occurrence: CN)
  Receive Date: 20210604
  Receipt Date: 20210604
  Transmission Date: 20210717
  Serious: Yes (Other)
  Sender: FDA-Public Use
  Company Number: CN-PFIZER INC-2021607668

PATIENT
  Age: 44 Year
  Sex: Female
  Weight: 65 kg

DRUGS (3)
  1. HUMAN GROWTH HORMONE, RECOMBINANT [Concomitant]
     Active Substance: SOMATROPIN
     Indication: ASSISTED REPRODUCTIVE TECHNOLOGY
     Dosage: 4 IU, 1X/DAY
     Route: 058
     Dates: start: 20210512, end: 20210512
  2. SILDENAFIL CITRATE. [Suspect]
     Active Substance: SILDENAFIL CITRATE
     Indication: UTERINE ISCHAEMIA
     Dosage: 100.000 MG, 1X/DAY
     Route: 066
     Dates: start: 20210512, end: 20210512
  3. PROGYNOVA [ESTRADIOL VALERATE] [Concomitant]
     Active Substance: ESTRADIOL VALERATE
     Indication: ASSISTED REPRODUCTIVE TECHNOLOGY
     Dosage: 3.000 MG, 3X/DAY
     Route: 058
     Dates: start: 20210426, end: 20210512

REACTIONS (4)
  - Pruritus [Recovered/Resolved]
  - Papule [Recovered/Resolved]
  - Off label use [Recovered/Resolved]
  - Product use issue [Recovered/Resolved]

NARRATIVE: CASE EVENT DATE: 20210514
